FAERS Safety Report 9509169 (Version 1)
Quarter: 2013Q3

REPORT INFORMATION
  Report Type: Spontaneous
  Country: US (occurrence: US)
  Receive Date: 20130909
  Receipt Date: 20130909
  Transmission Date: 20140515
  Serious: No
  Sender: FDA-Public Use
  Company Number: US-BRISTOL-MYERS SQUIBB COMPANY-17339318

PATIENT
  Sex: Male

DRUGS (14)
  1. ABILIFY TABS 5 MG [Suspect]
     Indication: DEPRESSION
     Dosage: DOSE REDUCED FROM 5MG TO 2.5MG.
  2. PROZAC [Concomitant]
  3. LISINOPRIL [Concomitant]
  4. CARVEDILOL [Concomitant]
  5. LASIX [Concomitant]
  6. KLOR-CON [Concomitant]
  7. SYNTHROID [Concomitant]
  8. TRICOR [Concomitant]
  9. FINASTERIDE [Concomitant]
  10. ALLOPURINOL [Concomitant]
  11. TRAVATAN [Concomitant]
     Dosage: 1DF:1 DROP IN EACH EYE
  12. ANDROGEL [Concomitant]
     Dosage: 1DF:4 PUMPS DAILY
  13. ASPIRIN [Concomitant]
  14. DOXYCYCLINE [Concomitant]
     Indication: HELICOBACTER TEST POSITIVE

REACTIONS (1)
  - Insomnia [Not Recovered/Not Resolved]
